FAERS Safety Report 11545812 (Version 1)
Quarter: 2015Q3

REPORT INFORMATION
  Report Type: Spontaneous
  Country: JP (occurrence: JP)
  Receive Date: 20150924
  Receipt Date: 20150924
  Transmission Date: 20151125
  Serious: Yes (Death, Hospitalization, Other)
  Sender: FDA-Public Use
  Company Number: JP-GLAXOSMITHKLINE-JP2015GSK134449

PATIENT
  Age: 49 Year
  Sex: Female

DRUGS (14)
  1. ETOPOSIDE. [Suspect]
     Active Substance: ETOPOSIDE
     Indication: ABDOMINAL PAIN
  2. RITUXIMAB [Suspect]
     Active Substance: RITUXIMAB
     Indication: LYMPHOMA
     Dosage: UNK, CYC
     Route: 065
     Dates: start: 201206
  3. CYCLOPHOSPHAMIDE. [Suspect]
     Active Substance: CYCLOPHOSPHAMIDE
     Indication: ABDOMINAL PAIN
  4. DOXORUBICIN [Suspect]
     Active Substance: DOXORUBICIN
     Indication: ABDOMINAL PAIN
  5. ETOPOSIDE. [Suspect]
     Active Substance: ETOPOSIDE
     Indication: LYMPHOMA
     Dosage: UNK, CYC
     Route: 065
     Dates: start: 2013
  6. VINCRISTINE SULFATE. [Suspect]
     Active Substance: VINCRISTINE SULFATE
     Indication: LYMPHOMA
     Dosage: UNK, CYC
     Route: 065
     Dates: start: 201206
  7. DOXORUBICIN [Suspect]
     Active Substance: DOXORUBICIN
     Indication: LYMPHOMA
     Dosage: UNK, CYC
     Route: 065
     Dates: start: 201206
  8. MELPHALAN [Suspect]
     Active Substance: MELPHALAN
     Indication: LYMPHOMA
     Dosage: UNK, CYC
     Route: 065
     Dates: start: 2013
  9. CYTARABINE. [Suspect]
     Active Substance: CYTARABINE
     Indication: LYMPHOMA
     Dosage: UNK, CYC
     Route: 065
     Dates: start: 201305
  10. PREDNISOLONE. [Suspect]
     Active Substance: PREDNISOLONE
     Indication: LYMPHOMA
     Dosage: UNK, CYC
     Route: 065
     Dates: start: 201206
  11. DEXAMETHASONE. [Suspect]
     Active Substance: DEXAMETHASONE
     Indication: LYMPHOMA
     Dosage: UNK, CYC
     Route: 065
     Dates: start: 201305
  12. CYCLOPHOSPHAMIDE. [Suspect]
     Active Substance: CYCLOPHOSPHAMIDE
     Indication: LYMPHOMA
     Dosage: UNK, CYC
     Route: 065
     Dates: start: 201206
  13. PREDNISOLONE. [Suspect]
     Active Substance: PREDNISOLONE
     Indication: ABDOMINAL PAIN
  14. CISPLATIN. [Suspect]
     Active Substance: CISPLATIN
     Indication: LYMPHOMA
     Dosage: UNK, CYC
     Route: 065
     Dates: start: 201305

REACTIONS (17)
  - Multi-organ failure [Fatal]
  - Blood lactate dehydrogenase increased [Unknown]
  - Blood osmolarity decreased [Unknown]
  - Inappropriate antidiuretic hormone secretion [Unknown]
  - Pleural effusion [Unknown]
  - Hepatic enzyme increased [Unknown]
  - Varicella zoster virus infection [Fatal]
  - Leukopenia [Unknown]
  - Hyponatraemia [Unknown]
  - Ascites [Unknown]
  - Pancreatitis acute [Unknown]
  - Lymphadenopathy [Unknown]
  - Pancreatic disorder [Unknown]
  - Liver disorder [Unknown]
  - Ileus [Unknown]
  - Urine osmolarity increased [Unknown]
  - Coagulopathy [Unknown]
